FAERS Safety Report 16271630 (Version 1)
Quarter: 2019Q2

REPORT INFORMATION
  Report Type: Spontaneous
  Country: DE (occurrence: DE)
  Receive Date: 20190503
  Receipt Date: 20190503
  Transmission Date: 20190711
  Serious: Yes (Other)
  Sender: FDA-Public Use
  Company Number: DE-ANIPHARMA-2019-DE-000058

PATIENT
  Age: 70 Year
  Sex: Female

DRUGS (4)
  1. CANDESARTAN. [Suspect]
     Active Substance: CANDESARTAN
     Indication: PRODUCT USED FOR UNKNOWN INDICATION
     Dosage: UNK
     Route: 048
  2. METOPROLOL SUCCINATE. [Suspect]
     Active Substance: METOPROLOL SUCCINATE
     Dosage: EVERY DAY (1 A PHARMA)
     Route: 048
  3. AMLODIPINE [Suspect]
     Active Substance: AMLODIPINE BESYLATE
     Dosage: 5 MG QD
     Route: 065
  4. NEPRESOL [Concomitant]
     Dosage: UNK
     Route: 065

REACTIONS (7)
  - Drug intolerance [Unknown]
  - Gastrointestinal infection [Unknown]
  - Fluid retention [Unknown]
  - Blood pressure increased [Unknown]
  - Malaise [Unknown]
  - Pigmentation disorder [Unknown]
  - Peripheral swelling [Unknown]
